FAERS Safety Report 14807185 (Version 1)
Quarter: 2018Q2

REPORT INFORMATION
  Report Type: Report from Study
  Country: US (occurrence: US)
  Receive Date: 20180425
  Receipt Date: 20180425
  Transmission Date: 20180711
  Serious: Yes (Death, Hospitalization)
  Sender: FDA-Public Use
  Company Number: US-ACTELION-A-NJ2017-159856

PATIENT
  Age: 80 Year
  Sex: Female

DRUGS (19)
  1. DOXYCYCLINE. [Concomitant]
     Active Substance: DOXYCYCLINE
  2. LANTUS [Concomitant]
     Active Substance: INSULIN GLARGINE
  3. GABAPENTIN. [Concomitant]
     Active Substance: GABAPENTIN
     Dosage: 300 MG, UNK
  4. SYMBICORT [Concomitant]
     Active Substance: BUDESONIDE\FORMOTEROL FUMARATE DIHYDRATE
  5. HYDROCODONE [Concomitant]
     Active Substance: HYDROCODONE
  6. METFORMIN [Concomitant]
     Active Substance: METFORMIN HYDROCHLORIDE
     Dosage: 1000 MG, UNK
  7. VENTOLIN [Concomitant]
     Active Substance: ALBUTEROL SULFATE
  8. CICLODAN [Concomitant]
     Active Substance: CICLOPIROX
  9. ESOMEPRAZOLE [Concomitant]
     Active Substance: ESOMEPRAZOLE
     Dosage: 40 MG, UNK
  10. MELOXICAM. [Concomitant]
     Active Substance: MELOXICAM
     Dosage: 7.5 MG, UNK
  11. OPSUMIT [Suspect]
     Active Substance: MACITENTAN
     Indication: PULMONARY ARTERIAL HYPERTENSION
     Dosage: 10 MG, UNK
     Route: 048
     Dates: start: 20170919
  12. BACLOFEN. [Concomitant]
     Active Substance: BACLOFEN
     Dosage: 10 MG, UNK
  13. BUMETANIDE. [Concomitant]
     Active Substance: BUMETANIDE
     Dosage: 10 MG, UNK
  14. IPRATROPIUM [Concomitant]
     Active Substance: IPRATROPIUM
  15. PRAVACHOL [Concomitant]
     Active Substance: PRAVASTATIN SODIUM
     Dosage: 40 MG, UNK
  16. ANORO ELLIPTA [Concomitant]
     Active Substance: UMECLIDINIUM BROMIDE\VILANTEROL TRIFENATATE
  17. IBUPROFEN. [Concomitant]
     Active Substance: IBUPROFEN
     Dosage: 800 MG, UNK
  18. LIDOCAINE. [Concomitant]
     Active Substance: LIDOCAINE
  19. LOSARTAN. [Concomitant]
     Active Substance: LOSARTAN

REACTIONS (5)
  - Death [Fatal]
  - Pulmonary arterial hypertension [Unknown]
  - Condition aggravated [Unknown]
  - Swelling [Unknown]
  - Fluid retention [Unknown]
